FAERS Safety Report 15043983 (Version 1)
Quarter: 2018Q2

REPORT INFORMATION
  Report Type: Spontaneous
  Country: US (occurrence: US)
  Receive Date: 20180531
  Receipt Date: 20180531
  Transmission Date: 20180711
  Serious: No
  Sender: FDA-Public Use
  Company Number: None

PATIENT
  Age: 54 Year
  Sex: Female

DRUGS (1)
  1. STELARA [Suspect]
     Active Substance: USTEKINUMAB

REACTIONS (7)
  - Blister [None]
  - Skin ulcer [None]
  - Feeling jittery [None]
  - Urticaria [None]
  - Anxiety [None]
  - Fatigue [None]
  - Abdominal pain lower [None]

NARRATIVE: CASE EVENT DATE: 20180228
